FAERS Safety Report 22178143 (Version 1)
Quarter: 2023Q2

REPORT INFORMATION
  Report Type: Other
  Country: US (occurrence: None)
  Receive Date: 20230405
  Receipt Date: 20230405
  Transmission Date: 20230721
  Serious: Yes (Other)
  Sender: FDA-Public Use
  Company Number: US-ROCHE-3324227

PATIENT
  Age: 81 Year
  Sex: Female

DRUGS (4)
  1. ESBRIET [Suspect]
     Active Substance: PIRFENIDONE
     Indication: Idiopathic pulmonary fibrosis
     Dosage: TAKE 3 CAPSULE(S) BY MOUTH 3 TIMES A DAY
     Route: 048
  2. ESBRIET [Suspect]
     Active Substance: PIRFENIDONE
     Indication: Lung carcinoma cell type unspecified stage 0
  3. ESBRIET [Suspect]
     Active Substance: PIRFENIDONE
     Indication: Type 2 diabetes mellitus
  4. ESBRIET [Suspect]
     Active Substance: PIRFENIDONE
     Indication: Cardiac disorder

REACTIONS (1)
  - Lung neoplasm malignant [Unknown]
